FAERS Safety Report 8781454 (Version 3)
Quarter: 2012Q4

REPORT INFORMATION
  Report Type: 
  Country: US (occurrence: US)
  Receive Date: 20120913
  Receipt Date: 20121015
  Transmission Date: 20130627
  Serious: Yes (Life-Threatening, Hospitalization)
  Sender: FDA-Public Use
  Company Number: PHEH2012US017629

PATIENT
  Sex: Female

DRUGS (2)
  1. EXELON PATCH [Suspect]
     Indication: DEMENTIA
     Dosage: 9.5 mg, daily
     Route: 062
  2. EXELON PATCH [Suspect]
     Dosage: 1 patch on her back and 1 on her arm and 1 in her airway

REACTIONS (22)
  - Apparent death [Unknown]
  - Respiratory depression [Unknown]
  - Pneumonia aspiration [Unknown]
  - Aspiration [Unknown]
  - Cyanosis [Unknown]
  - Cough [Unknown]
  - Hyperhidrosis [Unknown]
  - Heart rate increased [Unknown]
  - Lethargy [Unknown]
  - Vomiting [Unknown]
  - Hypoxia [Unknown]
  - Hypotension [Unknown]
  - Muscle contractions involuntary [Unknown]
  - Mental disorder [Unknown]
  - Oxygen saturation decreased [Unknown]
  - Micturition disorder [Unknown]
  - Abnormal faeces [Unknown]
  - Tremor [Unknown]
  - Overdose [Unknown]
  - Wrong technique in drug usage process [Unknown]
  - Incorrect route of drug administration [Unknown]
  - Incorrect drug administration duration [Unknown]
